FAERS Safety Report 5295532-0 (Version None)
Quarter: 2007Q2

REPORT INFORMATION
  Report Type: 
  Country: None (occurrence: None)
  Receive Date: 20070405
  Receipt Date: 20070321
  Transmission Date: 20071010
  Serious: Yes (Death, Hospitalization)
  Sender: FDA-Public Use
  Company Number: 238628

PATIENT
  Age: 44 Year
  Sex: Female

DRUGS (9)
  1. RAPTIVA [Suspect]
     Indication: PSORIASIS
     Dosage: 1 UNK, 1/WEEK, SUBCUTANEOUS
     Route: 058
     Dates: start: 20060616, end: 20070214
  2. ANTIHYPERTENSIVE (ANTIHYPERTENSIVE NOS) [Concomitant]
  3. HYDROCORTISONE [Concomitant]
  4. DILTIAZEM HCL [Concomitant]
  5. HYTACAND (CANDESARTAN CILEXETIL, HYDROCHLOROTHIAZIDE) [Concomitant]
  6. MOXONIDINE (MOXONIDINE) [Concomitant]
  7. RELVENE (TROXERUTIN) [Concomitant]
  8. PANTOPRAZOLE SODIUM [Concomitant]
  9. ACETAMINOPHEN [Concomitant]

REACTIONS (9)
  - ACUTE PULMONARY OEDEMA [None]
  - BLOOD PRESSURE ABNORMAL [None]
  - BLOOD PRESSURE INCREASED [None]
  - CARDIAC DISORDER [None]
  - CYANOSIS [None]
  - HEART RATE INCREASED [None]
  - INSOMNIA [None]
  - PLATELET COUNT INCREASED [None]
  - WHITE BLOOD CELL COUNT INCREASED [None]
